FAERS Safety Report 15837880 (Version 1)
Quarter: 2019Q1

REPORT INFORMATION
  Report Type: Spontaneous
  Country: US (occurrence: US)
  Receive Date: 20190117
  Receipt Date: 20190117
  Transmission Date: 20190417
  Serious: Yes (Other)
  Sender: FDA-Public Use
  Company Number: None

PATIENT
  Age: 64 Year
  Sex: Female
  Weight: 70.2 kg

DRUGS (1)
  1. ATOVAQUONE-PROGUANIL 250-100 [Suspect]
     Active Substance: ATOVAQUONE\PROGUANIL HYDROCHLORIDE
     Indication: MALARIA PROPHYLAXIS
     Dosage: ?          QUANTITY:1 TABLET(S);?
     Route: 048
     Dates: start: 20181231, end: 20190104

REACTIONS (3)
  - Drug effect decreased [None]
  - Drug ineffective [None]
  - Inhibitory drug interaction [None]

NARRATIVE: CASE EVENT DATE: 20190104
